FAERS Safety Report 8209773-3 (Version None)
Quarter: 2012Q1

REPORT INFORMATION
  Report Type: 
  Country: None (occurrence: None)
  Receive Date: 20120228
  Receipt Date: 20110203
  Transmission Date: 20120608
  Serious: Yes (Hospitalization, Other)
  Sender: FDA-Public Use
  Company Number: RB-21795-2011

PATIENT
  Sex: Female

DRUGS (3)
  1. SUBUTEX [Suspect]
     Indication: DRUG DEPENDENCE
     Dosage: (8 MG, QID TRANSPLACENTAL) ; (36 MG QD TRANSPLACENTAL)
     Route: 064
     Dates: start: 20100101, end: 20101201
  2. SUBUTEX [Suspect]
     Indication: DRUG DEPENDENCE
     Dosage: (8 MG, QID TRANSPLACENTAL) ; (36 MG QD TRANSPLACENTAL)
     Route: 064
     Dates: start: 20100628, end: 20100101
  3. SUBUTEX [Suspect]
     Dosage: (36 MG QD TRANSMAMMARY)
     Route: 063
     Dates: start: 20101201, end: 20101211

REACTIONS (3)
  - IRRITABILITY [None]
  - EXPOSURE DURING BREAST FEEDING [None]
  - DRUG WITHDRAWAL SYNDROME NEONATAL [None]
